FAERS Safety Report 22145383 (Version 1)
Quarter: 2023Q1

REPORT INFORMATION
  Report Type: Spontaneous
  Country: CA (occurrence: CA)
  Receive Date: 20230328
  Receipt Date: 20230328
  Transmission Date: 20230417
  Serious: Yes (Life-Threatening, Hospitalization, Other)
  Sender: FDA-Public Use
  Company Number: CA-ASTELLAS-2022US044684

PATIENT
  Age: 58 Year
  Sex: Male

DRUGS (11)
  1. BENDAMUSTINE HYDROCHLORIDE [Suspect]
     Active Substance: BENDAMUSTINE HYDROCHLORIDE
     Indication: Follicular lymphoma
     Dosage: (DAILY X 2 DAYS EVERY 28 DAYS FOR 6 CYCLES)
     Route: 042
     Dates: start: 20200225, end: 20200715
  2. PREDNISONE [Suspect]
     Active Substance: PREDNISONE
     Indication: COVID-19
     Dosage: 50 MILLIGRAM DAILY;
     Route: 048
  3. PREDNISONE [Suspect]
     Active Substance: PREDNISONE
     Indication: Organising pneumonia
     Dosage: 10 MILLIGRAM DAILY;
     Route: 048
  4. RITUXIMAB [Suspect]
     Active Substance: RITUXIMAB
     Indication: Follicular lymphoma
     Dosage: (ON DAY 1 OF EACH CYCLE)
     Route: 065
     Dates: start: 20200225
  5. RITUXIMAB [Suspect]
     Active Substance: RITUXIMAB
     Dosage: (MAINTENANCE DOSE)
     Route: 065
     Dates: start: 20201002
  6. DEXAMETHASONE [Suspect]
     Active Substance: DEXAMETHASONE
     Indication: COVID-19
     Dosage: 6 MILLIGRAM DAILY;
     Route: 048
  7. DEXAMETHASONE [Suspect]
     Active Substance: DEXAMETHASONE
     Dosage: 4 MG
     Route: 048
  8. BAMLANIVIMAB [Suspect]
     Active Substance: BAMLANIVIMAB
     Indication: COVID-19
     Dosage: 700 MG , DAY 133; ONE DOSE
     Route: 065
  9. immunoglobulin [Concomitant]
     Indication: Hypogammaglobulinaemia
     Dosage: 75 MG , DAYS 137, 165 AND 193; ONE DOSE EAC
     Route: 042
  10. REMDESIVIR [Concomitant]
     Active Substance: REMDESIVIR
     Indication: COVID-19
     Dosage: 200 MG , LOADING DOSE THEN 100MG DAILY
     Route: 042
  11. REMDESIVIR [Concomitant]
     Active Substance: REMDESIVIR
     Dosage: 100 MILLIGRAM DAILY;
     Route: 042

REACTIONS (5)
  - Hypogammaglobulinaemia [Recovering/Resolving]
  - COVID-19 [Recovering/Resolving]
  - Post-acute COVID-19 syndrome [Recovering/Resolving]
  - Respiratory failure [Recovering/Resolving]
  - Off label use [Unknown]

NARRATIVE: CASE EVENT DATE: 20201107
